FAERS Safety Report 17356344 (Version 1)
Quarter: 2020Q1

REPORT INFORMATION
  Report Type: Spontaneous
  Country: JP (occurrence: JP)
  Receive Date: 20200131
  Receipt Date: 20200131
  Transmission Date: 20200409
  Serious: Yes (Death, Other)
  Sender: FDA-Public Use
  Company Number: JP-ASTRAZENECA-2019SF25050

PATIENT
  Age: 65 Year
  Sex: Female
  Weight: 53 kg

DRUGS (8)
  1. MITIGLINIDE CA OD [Concomitant]
     Active Substance: MITIGLINIDE CALCIUM ANHYDROUS
     Indication: DIABETES MELLITUS
     Route: 048
     Dates: start: 20190329, end: 20190906
  2. CODEINE [Concomitant]
     Active Substance: CODEINE
     Indication: PALLIATIVE CARE
     Dosage: 0.2G AS REQUIRED
     Route: 048
     Dates: start: 20190702, end: 20190906
  3. TAGRISSO [Suspect]
     Active Substance: OSIMERTINIB
     Indication: NON-SMALL CELL LUNG CANCER
     Route: 048
     Dates: start: 20190709, end: 20190807
  4. THEO-DUR [Concomitant]
     Active Substance: THEOPHYLLINE ANHYDROUS
     Indication: ASTHMA
     Route: 048
     Dates: start: 20180216, end: 20190906
  5. CELECOX [Concomitant]
     Active Substance: CELECOXIB
     Indication: PAIN
     Route: 048
     Dates: start: 20190510, end: 20190906
  6. TAKECAB [Concomitant]
     Active Substance: VONOPRAZAN FUMURATE
     Indication: GASTROOESOPHAGEAL REFLUX DISEASE
     Route: 048
     Dates: start: 20190517, end: 20190906
  7. AMLODIPINE [Concomitant]
     Active Substance: AMLODIPINE BESYLATE
     Indication: HYPERTENSION
     Route: 048
     Dates: start: 20190425, end: 20190906
  8. VOGLIBOSE [Suspect]
     Active Substance: VOGLIBOSE
     Indication: DIABETES MELLITUS
     Route: 048
     Dates: start: 20190711, end: 20190906

REACTIONS (7)
  - Lung adenocarcinoma [Fatal]
  - Respiratory arrest [Fatal]
  - Malignant neoplasm progression [Unknown]
  - Interstitial lung disease [Recovering/Resolving]
  - Cardiac arrest [Fatal]
  - Diarrhoea [Recovered/Resolved]
  - Dermatitis acneiform [Recovering/Resolving]

NARRATIVE: CASE EVENT DATE: 20190714
